FAERS Safety Report 14032116 (Version 2)
Quarter: 2018Q1

REPORT INFORMATION
  Report Type: Spontaneous
  Country: JP (occurrence: JP)
  Receive Date: 20171002
  Receipt Date: 20180201
  Transmission Date: 20180508
  Serious: Yes (Hospitalization, Other)
  Sender: FDA-Public Use
  Company Number: JP-PFIZER INC-2017422968

PATIENT
  Age: 80 Year
  Sex: Male
  Weight: 71 kg

DRUGS (11)
  1. ZALTRAP [Suspect]
     Active Substance: ZIV-AFLIBERCEPT
     Dosage: 300 MG, 1X/DAY
     Route: 041
     Dates: start: 20170828, end: 20170828
  2. LEVOFOLINATE CALCIUM [Concomitant]
     Active Substance: LEVOLEUCOVORIN CALCIUM
     Indication: RECTAL CANCER
     Dosage: UNK UNK, CYCLIC
     Dates: start: 20170711, end: 20170911
  3. JUZENTAIHOTO [Concomitant]
     Active Substance: HERBALS
     Dosage: UNK
     Dates: start: 20170712, end: 20170924
  4. CAMPTO [Suspect]
     Active Substance: IRINOTECAN
     Dosage: 180 MG, 1X/DAY
     Route: 041
     Dates: start: 20170807, end: 20170807
  5. ZALTRAP [Suspect]
     Active Substance: ZIV-AFLIBERCEPT
     Indication: RECTAL CANCER
     Dosage: 300 MG, 1X/DAY
     Dates: start: 20170711, end: 20170711
  6. CAMPTO [Suspect]
     Active Substance: IRINOTECAN
     Dosage: 180 MG, 1X/DAY
     Route: 041
     Dates: start: 20170828, end: 20170828
  7. CAMPTO [Suspect]
     Active Substance: IRINOTECAN
     Indication: RECTAL CANCER
     Dosage: 180 MG, 1X/DAY
     Route: 041
     Dates: start: 20170711, end: 20170711
  8. CAMPTO [Suspect]
     Active Substance: IRINOTECAN
     Dosage: 180 MG, 1X/DAY
     Route: 041
     Dates: start: 20170911, end: 20170911
  9. ZALTRAP [Suspect]
     Active Substance: ZIV-AFLIBERCEPT
     Dosage: 300 MG, 1X/DAY
     Route: 041
     Dates: start: 20170807, end: 20170807
  10. ZALTRAP [Suspect]
     Active Substance: ZIV-AFLIBERCEPT
     Dosage: 300 MG, 1X/DAY
     Route: 041
     Dates: start: 20170911, end: 20170911
  11. 5-FU [Concomitant]
     Active Substance: FLUOROURACIL
     Indication: RECTAL CANCER
     Dosage: UNK UNK, CYCLIC
     Dates: start: 20170711, end: 20170911

REACTIONS (4)
  - Pyrexia [Recovering/Resolving]
  - Malaise [Unknown]
  - Interstitial lung disease [Recovering/Resolving]
  - Stoma site haemorrhage [Recovering/Resolving]

NARRATIVE: CASE EVENT DATE: 20170919
